FAERS Safety Report 6174983-6 (Version None)
Quarter: 2009Q2

REPORT INFORMATION
  Report Type: 
  Country: None (occurrence: None)
  Receive Date: 20090430
  Receipt Date: 20081105
  Transmission Date: 20091009
  Serious: No
  Sender: FDA-Public Use
  Company Number: US-ASTRAZENECA-2008UW24738

PATIENT
  Age: 66 Year
  Sex: Male
  Weight: 81.6 kg

DRUGS (3)
  1. NEXIUM [Suspect]
     Indication: THROAT IRRITATION
     Dosage: UNKNOWN
     Route: 048
     Dates: start: 20081001
  2. CRESTOR [Concomitant]
     Route: 048
  3. VITAMIN [Concomitant]

REACTIONS (1)
  - MUSCLE STRAIN [None]
